FAERS Safety Report 10101219 (Version 1)
Quarter: 2014Q2

REPORT INFORMATION
  Report Type: Spontaneous
  Country: US (occurrence: US)
  Receive Date: 20140424
  Receipt Date: 20140424
  Transmission Date: 20141212
  Serious: No
  Sender: FDA-Public Use
  Company Number: US-BAYER-2014-047431

PATIENT
  Age: 72 Year
  Sex: Female

DRUGS (1)
  1. SOTALOL [Suspect]

REACTIONS (4)
  - Drug hypersensitivity [None]
  - Abdominal pain upper [None]
  - Headache [None]
  - Diarrhoea [None]
